FAERS Safety Report 25619844 (Version 2)
Quarter: 2025Q4

REPORT INFORMATION
  Report Type: Spontaneous
  Country: US (occurrence: US)
  Receive Date: 20250730
  Receipt Date: 20251223
  Transmission Date: 20260118
  Serious: Yes (Other)
  Sender: ROCHE
  Company Number: US-ROCHE-10000347018

PATIENT
  Age: 57 Year
  Sex: Female

DRUGS (5)
  1. VABYSMO [Suspect]
     Active Substance: FARICIMAB-SVOA
     Indication: Product used for unknown indication
     Dosage: DOS : 17-MAY-2024?22-APR-2024?DISCONTINUED
  2. LUCENTIS [Concomitant]
     Active Substance: RANIBIZUMAB
  3. EYLEA [Concomitant]
     Active Substance: AFLIBERCEPT
  4. PredForte (prednisolone acetate [Concomitant]
  5. Valtrex (valacyclovir) [Concomitant]

REACTIONS (1)
  - Iridocyclitis [Recovered/Resolved]
